FAERS Safety Report 19254974 (Version 1)
Quarter: 2021Q2

REPORT INFORMATION
  Report Type: Spontaneous
  Country: US (occurrence: US)
  Receive Date: 20210513
  Receipt Date: 20210513
  Transmission Date: 20210717
  Serious: No
  Sender: FDA-Public Use
  Company Number: US-ALLERGAN-2040943US

PATIENT
  Age: 72 Year
  Sex: Female

DRUGS (3)
  1. UNKNOWN MIGRAINE MEDICINE [Concomitant]
     Indication: MIGRAINE
  2. UNKNOWN THYROID MEDICINE [Concomitant]
     Indication: THYROID DISORDER
  3. FML FORTE [Suspect]
     Active Substance: FLUOROMETHOLONE
     Indication: EYE ALLERGY
     Dosage: 2 GTT (THREE TIMES A WEEK)
     Route: 047

REACTIONS (2)
  - Drug ineffective [Unknown]
  - Off label use [Unknown]

NARRATIVE: CASE EVENT DATE: 202010
